FAERS Safety Report 8936053 (Version 1)
Quarter: 2012Q4

REPORT INFORMATION
  Report Type: Spontaneous
  Country: US (occurrence: None)
  Receive Date: 20121121
  Receipt Date: 20121121
  Transmission Date: 20130627
  Serious: Yes (Hospitalization)
  Sender: FDA-Public Use
  Company Number: CIO12022381

PATIENT
  Age: 91 Year
  Sex: Female

DRUGS (1)
  1. METAMUCIL [Suspect]
     Dosage: 1 tbsp. 1/day, oral
     Route: 048

REACTIONS (3)
  - Gastrointestinal obstruction [None]
  - Dehydration [None]
  - Wrong technique in drug usage process [None]
